FAERS Safety Report 15434758 (Version 1)
Quarter: 2018Q3

REPORT INFORMATION
  Report Type: Spontaneous
  Country: US (occurrence: US)
  Receive Date: 20180921
  Receipt Date: 20180921
  Transmission Date: 20181010
  Serious: Yes (Hospitalization)
  Sender: FDA-Public Use
  Company Number: None

PATIENT
  Age: 48 Year
  Sex: Male
  Weight: 130 kg

DRUGS (1)
  1. ETANERCEPT [Suspect]
     Active Substance: ETANERCEPT
     Indication: SARCOIDOSIS
     Route: 058
     Dates: start: 20180509, end: 20180530

REACTIONS (2)
  - Rash [None]
  - Blister [None]

NARRATIVE: CASE EVENT DATE: 20180530
